FAERS Safety Report 9891798 (Version 2)
Quarter: 2014Q1

REPORT INFORMATION
  Report Type: Spontaneous
  Country: VE (occurrence: VE)
  Receive Date: 20140212
  Receipt Date: 20140212
  Transmission Date: 20141002
  Serious: Yes (Other)
  Sender: FDA-Public Use
  Company Number: VE-PFIZER INC-2014011175

PATIENT
  Age: 67 Year
  Sex: Female

DRUGS (3)
  1. LIPITOR [Suspect]
     Indication: HYPERCHOLESTEROLAEMIA
     Dosage: 20 MG, 1X/DAY
     Route: 048
  2. MICARDIS HCT [Concomitant]
     Indication: HYPERTENSION
     Dosage: 1 DF, 1X/DAY
     Route: 048
  3. GLUCOFAGE [Concomitant]
     Indication: DIABETES MELLITUS
     Dosage: 850 MG, 1X/DAY
     Route: 048

REACTIONS (3)
  - Gastric ulcer [Recovered/Resolved]
  - Helicobacter infection [Recovered/Resolved]
  - Gastrooesophageal reflux disease [Recovered/Resolved]
